FAERS Safety Report 12109241 (Version 1)
Quarter: 2016Q1

REPORT INFORMATION
  Report Type: Spontaneous
  Country: US (occurrence: None)
  Receive Date: 20160222
  Receipt Date: 20160222
  Transmission Date: 20160526
  Serious: Yes (Hospitalization)
  Sender: FDA-Public Use
  Company Number: None

PATIENT
  Age: 64 Year
  Sex: Female

DRUGS (17)
  1. ATORVASTATIN [Concomitant]
     Active Substance: ATORVASTATIN
  2. DOCUSATE [Concomitant]
     Active Substance: DOCUSATE
  3. PROCHLORPERAZINE. [Concomitant]
     Active Substance: PROCHLORPERAZINE
  4. BISACODYL. [Concomitant]
     Active Substance: BISACODYL
  5. SERTRALINE [Concomitant]
     Active Substance: SERTRALINE HYDROCHLORIDE
  6. ALLOPURINOL. [Concomitant]
     Active Substance: ALLOPURINOL
  7. LORAZAPAM [Concomitant]
     Active Substance: LORAZEPAM
  8. ONDANSETRON [Concomitant]
     Active Substance: ONDANSETRON
  9. SULFAMETHOXAZOLE/TRIMETHOPRIM [Concomitant]
     Active Substance: SULFAMETHOXAZOLE\TRIMETHOPRIM
  10. PREDNISONE. [Suspect]
     Active Substance: PREDNISONE
     Indication: NEOPLASM MALIGNANT
     Route: 048
     Dates: start: 20160109
  11. HYDROMORPHONE [Concomitant]
     Active Substance: HYDROMORPHONE
  12. SUCRALFATE. [Concomitant]
     Active Substance: SUCRALFATE
  13. DASATINIB [Suspect]
     Active Substance: DASATINIB
     Route: 048
  14. SCOPOLAMINE [Concomitant]
     Active Substance: SCOPOLAMINE
  15. NYSTATIN ORAL LIQUID [Concomitant]
     Active Substance: NYSTATIN
  16. SENNA [Concomitant]
     Active Substance: SENNA LEAF\SENNOSIDES\SENNOSIDES A AND B
  17. TEMAZEPAM. [Concomitant]
     Active Substance: TEMAZEPAM

REACTIONS (4)
  - Haematemesis [None]
  - Ulcer [None]
  - Upper gastrointestinal haemorrhage [None]
  - Nausea [None]

NARRATIVE: CASE EVENT DATE: 20160121
